FAERS Safety Report 19673729 (Version 1)
Quarter: 2021Q3

REPORT INFORMATION
  Report Type: Spontaneous
  Country: US (occurrence: US)
  Receive Date: 20210808
  Receipt Date: 20210808
  Transmission Date: 20211014
  Serious: Yes (Hospitalization)
  Sender: FDA-Public Use
  Company Number: None

PATIENT
  Age: 77 Year
  Sex: Male
  Weight: 59.85 kg

DRUGS (10)
  1. CVS PROBIOTIC [Concomitant]
  2. LOSARTAN. [Concomitant]
     Active Substance: LOSARTAN
  3. VITAMIN B COMPLEX [Concomitant]
     Active Substance: CYANOCOBALAMIN\DEXPANTHENOL\NIACINAMIDE\PYRIDOXINE HYDROCHLORIDE\RIBOFLAVIN 5^-PHOSPHATE SODIUM\THIAMINE HYDROCHLORIDE\VITAMIN B COMPLEX
  4. PREDISOLONE/GATIFLOXACIN CVS 15 /0.5 [Suspect]
     Active Substance: GATIFLOXACIN\PREDNISOLONE
     Indication: INFECTION
     Dosage: ?          QUANTITY:1 DROP(S);?
     Route: 047
     Dates: start: 20210712, end: 20210724
  5. ROSAVUSTATIN [Concomitant]
  6. AMLODIPINE BESYLATE. [Concomitant]
     Active Substance: AMLODIPINE BESYLATE
  7. CENTRUM SENIOR FOR MEN [Concomitant]
  8. SYMBICORT [Concomitant]
     Active Substance: BUDESONIDE\FORMOTEROL FUMARATE DIHYDRATE
  9. VITAMIN D3 [Concomitant]
     Active Substance: CHOLECALCIFEROL
  10. MAGNESIUM [Concomitant]
     Active Substance: MAGNESIUM

REACTIONS (10)
  - Eyelid pain [None]
  - Vision blurred [None]
  - Eye inflammation [None]
  - Suspected product quality issue [None]
  - Visual acuity reduced [None]
  - Dry eye [None]
  - Photophobia [None]
  - Post procedural complication [None]
  - Disease recurrence [None]
  - Corneal disorder [None]

NARRATIVE: CASE EVENT DATE: 20210722
